FAERS Safety Report 6849492-9 (Version None)
Quarter: 2010Q3

REPORT INFORMATION
  Report Type: 
  Country: None (occurrence: None)
  Receive Date: 20100716
  Receipt Date: 20071001
  Transmission Date: 20110219
  Serious: No
  Sender: FDA-Public Use
  Company Number: US-PFIZER INC-2007082951

PATIENT
  Sex: Female
  Weight: 90.9 kg

DRUGS (6)
  1. CHANTIX [Suspect]
     Indication: SMOKING CESSATION THERAPY
     Dates: start: 20070924
  2. TRAZODONE HYDROCHLORIDE [Concomitant]
  3. LORAZEPAM [Concomitant]
  4. RETIN-A [Concomitant]
  5. CEPHALEXIN [Concomitant]
     Indication: ACNE
  6. PRILOSEC [Concomitant]

REACTIONS (6)
  - DYSPHEMIA [None]
  - ENERGY INCREASED [None]
  - EXOPHTHALMOS [None]
  - EYE DISORDER [None]
  - HYPERHIDROSIS [None]
  - NAUSEA [None]
